FAERS Safety Report 5593503-8 (Version None)
Quarter: 2008Q1

REPORT INFORMATION
  Report Type: 
  Country: None (occurrence: None)
  Receive Date: 20080116
  Receipt Date: 20070114
  Transmission Date: 20080703
  Serious: Yes (Congenital Anomaly)
  Sender: FDA-Public Use
  Company Number: GB-TEVA-166286ISR

PATIENT
  Sex: Female
  Weight: 2.6 kg

DRUGS (3)
  1. AMOXICILLIN [Suspect]
     Indication: URINARY TRACT INFECTION
     Dates: start: 20070320, end: 20070327
  2. MALARONE [Suspect]
     Indication: MALARIA PROPHYLAXIS
     Dates: start: 20060909, end: 20061204
  3. PARACETAMOL [Suspect]
     Indication: PAIN
     Dates: start: 20070111, end: 20070115

REACTIONS (2)
  - DRUG EXPOSURE DURING PREGNANCY [None]
  - VENTRICULAR SEPTAL DEFECT [None]
